FAERS Safety Report 4532643-9 (Version None)
Quarter: 2004Q4

REPORT INFORMATION
  Report Type: 
  Country: None (occurrence: None)
  Receive Date: 20041221
  Receipt Date: 20041122
  Transmission Date: 20050328
  Serious: Yes (Death)
  Sender: FDA-Public Use
  Company Number: 2004-11-0936

PATIENT
  Age: 48 Year
  Sex: Male

DRUGS (6)
  1. BUPRENORPHINE HCL [Suspect]
     Indication: DRUG ABUSER
     Dosage: DOSAGE UNKNOWN
     Route: 065
  2. MIANSERIN HYDROCHLORIDE [Concomitant]
     Indication: DEPRESSION
     Route: 065
  3. PEG-INTRON [Concomitant]
     Indication: HEPATITIS C
     Dosage: UNKNOWN
     Route: 065
  4. RIBAVIRIN [Concomitant]
     Indication: HEPATITIS C
     Dosage: UNKNOWN
     Route: 065
  5. CLONAZEPAM [Concomitant]
     Indication: DRUG USE FOR UNKNOWN INDICATION
     Dosage: UNKNOWN
     Route: 065
  6. ZOPICLONE [Concomitant]
     Indication: DRUG USE FOR UNKNOWN INDICATION
     Dosage: UNKNOWN
     Route: 065

REACTIONS (1)
  - COMPLETED SUICIDE [None]
